FAERS Safety Report 21462222 (Version 3)
Quarter: 2022Q4

REPORT INFORMATION
  Report Type: Report from Study
  Country: US (occurrence: US)
  Receive Date: 20221016
  Receipt Date: 20221123
  Transmission Date: 20230112
  Serious: No
  Sender: FDA-Public Use
  Company Number: US-ABBVIE-4144866

PATIENT
  Age: 68 Year
  Sex: Male

DRUGS (2)
  1. HUMIRA [Suspect]
     Active Substance: ADALIMUMAB
     Indication: Crohn^s disease
     Dosage: CITRATE FREE?FORM STRENGTH - 40 MG
     Route: 058
  2. HUMIRA [Suspect]
     Active Substance: ADALIMUMAB
     Indication: Colitis ulcerative

REACTIONS (7)
  - Cough [Unknown]
  - Hypersensitivity [Unknown]
  - Flatulence [Unknown]
  - Frequent bowel movements [Unknown]
  - Stress [Unknown]
  - Illness [Recovering/Resolving]
  - Pertussis [Not Recovered/Not Resolved]

NARRATIVE: CASE EVENT DATE: 20220801
